FAERS Safety Report 15277336 (Version 2)
Quarter: 2018Q3

REPORT INFORMATION
  Report Type: Report from Study
  Country: US (occurrence: US)
  Receive Date: 20180814
  Receipt Date: 20180817
  Transmission Date: 20181010
  Serious: Yes (Hospitalization, Other)
  Sender: FDA-Public Use
  Company Number: US-SA-2017SA108496

PATIENT
  Age: 45 Year
  Sex: Female

DRUGS (5)
  1. ADDERALL [Concomitant]
     Active Substance: AMPHETAMINE ASPARTATE\AMPHETAMINE SULFATE\DEXTROAMPHETAMINE SACCHARATE\DEXTROAMPHETAMINE SULFATE
     Dosage: UNK
  2. CLONIDINE. [Concomitant]
     Active Substance: CLONIDINE
     Dosage: UNK
     Dates: start: 20170524
  3. ALEMTUZUMAB [Suspect]
     Active Substance: ALEMTUZUMAB
     Dosage: 12 MG, QD
     Route: 041
     Dates: start: 20180611, end: 20180613
  4. HYDRALAZINE [Concomitant]
     Active Substance: HYDRALAZINE HYDROCHLORIDE
     Dosage: UNK
     Route: 042
     Dates: start: 20170524
  5. ALEMTUZUMAB [Suspect]
     Active Substance: ALEMTUZUMAB
     Indication: MULTIPLE SCLEROSIS
     Dosage: 12 MG, QD
     Route: 041
     Dates: start: 20170524, end: 20170526

REACTIONS (27)
  - Dehydration [Unknown]
  - Muscular weakness [Not Recovered/Not Resolved]
  - Blood thyroid stimulating hormone increased [Recovering/Resolving]
  - Rash pruritic [Recovered/Resolved]
  - Blood pressure increased [Unknown]
  - Drug hypersensitivity [Unknown]
  - Visual field defect [Unknown]
  - Delirium [Unknown]
  - CD4 lymphocytes decreased [Recovering/Resolving]
  - Pharyngitis streptococcal [Recovered/Resolved]
  - Confusional state [Unknown]
  - Paranoia [Unknown]
  - Vision blurred [Unknown]
  - Multiple sclerosis relapse [Unknown]
  - Delusional disorder, unspecified type [Unknown]
  - Diarrhoea [Recovered/Resolved]
  - Renal impairment [Unknown]
  - Vertebral lesion [Not Recovered/Not Resolved]
  - Hallucination [Unknown]
  - Fall [Recovered/Resolved]
  - Myalgia [Recovered/Resolved]
  - Insomnia [Unknown]
  - Urinary tract infection [Not Recovered/Not Resolved]
  - Post-traumatic stress disorder [Unknown]
  - Vomiting [Recovered/Resolved]
  - Cystitis [Unknown]
  - Aggression [Unknown]

NARRATIVE: CASE EVENT DATE: 2017
